FAERS Safety Report 11219869 (Version 1)
Quarter: 2015Q2

REPORT INFORMATION
  Report Type: Spontaneous
  Country: DE (occurrence: DE)
  Receive Date: 20150625
  Receipt Date: 20150625
  Transmission Date: 20150821
  Serious: Yes (Hospitalization, Disabling, Other)
  Sender: FDA-Public Use
  Company Number: DE-ASTRAZENECA-2015SE60616

PATIENT
  Age: 56 Year
  Sex: Female

DRUGS (3)
  1. PROPAFENON HEUMANN [Concomitant]
     Route: 048
  2. FORXIGA [Suspect]
     Active Substance: DAPAGLIFLOZIN
     Route: 048
  3. METFORMIN INN [Concomitant]

REACTIONS (16)
  - Cerebral infarction [Unknown]
  - Electrolyte imbalance [Unknown]
  - Sepsis [Unknown]
  - Dehydration [Unknown]
  - Dyspnoea [Unknown]
  - Bradycardia [Unknown]
  - Dysarthria [Unknown]
  - Dysphagia [Unknown]
  - Sinus node dysfunction [Unknown]
  - Paraplegia [Unknown]
  - Ketoacidosis [Unknown]
  - Tachycardia [Unknown]
  - Confusional state [Unknown]
  - Hyperglycaemia [Unknown]
  - Pneumonia [Unknown]
  - Somnolence [Unknown]
